FAERS Safety Report 8390076-1 (Version None)
Quarter: 2012Q2

REPORT INFORMATION
  Report Type: 
  Country: None (occurrence: None)
  Receive Date: 20120529
  Receipt Date: 20120521
  Transmission Date: 20120825
  Serious: Yes (Other)
  Sender: FDA-Public Use
  Company Number: PHHY2012JP045341

PATIENT
  Age: 80 Year
  Sex: Male

DRUGS (2)
  1. ADRENOCORTICOTROPHIC HORMONE [Suspect]
     Indication: MYELODYSPLASTIC SYNDROME
  2. EXJADE [Suspect]
     Indication: MYELODYSPLASTIC SYNDROME
     Dosage: 125 MG, DAILY
     Route: 048
     Dates: start: 20120401, end: 20120401

REACTIONS (2)
  - VEIN DISORDER [None]
  - OEDEMA PERIPHERAL [None]
